FAERS Safety Report 5629956-6 (Version None)
Quarter: 2008Q1

REPORT INFORMATION
  Report Type: 
  Country: None (occurrence: None)
  Receive Date: 20080218
  Receipt Date: 20080205
  Transmission Date: 20080703
  Serious: Yes (Death, Other)
  Sender: FDA-Public Use
  Company Number: CA-ROCHE-546157

PATIENT
  Age: 62 Year
  Sex: Male
  Weight: 77 kg

DRUGS (6)
  1. PEGASYS [Suspect]
     Indication: HEPATITIS C
     Dosage: OTHER INDICATION REPORTED AS CIRRHOSIS.
     Route: 058
     Dates: start: 20070802, end: 20080116
  2. COPEGUS [Suspect]
     Indication: HEPATITIS C
     Dosage: OTHER INDICATION REPORTED AS CIRRHOSIS.
     Route: 048
     Dates: start: 20070802, end: 20080116
  3. INSULIN [Concomitant]
     Dates: end: 20080126
  4. RAMIPRIL [Concomitant]
     Indication: HYPERTENSION
     Route: 048
     Dates: end: 20080126
  5. PAROXETINE HCL [Concomitant]
     Dates: end: 20080126
  6. FOLIC ACID [Concomitant]
     Route: 048
     Dates: end: 20080126

REACTIONS (4)
  - ANAEMIA [None]
  - ASCITES [None]
  - MULTI-ORGAN FAILURE [None]
  - PNEUMONIA [None]
